FAERS Safety Report 6585089-6 (Version None)
Quarter: 2010Q1

REPORT INFORMATION
  Report Type: 
  Country: None (occurrence: None)
  Receive Date: 20100217
  Receipt Date: 20100205
  Transmission Date: 20100710
  Serious: Yes (Hospitalization)
  Sender: FDA-Public Use
  Company Number: US-ROCHE-683321

PATIENT
  Age: 65 Year
  Sex: Female
  Weight: 69.4 kg

DRUGS (2)
  1. BLINDED BEVACIZUMAB [Suspect]
     Indication: GLIOBLASTOMA MULTIFORME
     Dosage: LAST DATE OF ADMINISTRATION 29 JANUARY 2010.
     Route: 042
     Dates: start: 20091203
  2. TEMOZOLOMIDE [Suspect]
     Indication: GLIOBLASTOMA MULTIFORME
     Dosage: TOTAL DOSE: 5590 MG.
     Route: 048
     Dates: end: 20100115

REACTIONS (5)
  - DEHYDRATION [None]
  - FATIGUE [None]
  - HAEMOGLOBIN [None]
  - HAEMOLYSIS [None]
  - THROMBOSIS [None]
